FAERS Safety Report 19520325 (Version 1)
Quarter: 2021Q3

REPORT INFORMATION
  Report Type: Spontaneous
  Country: US (occurrence: US)
  Receive Date: 20210712
  Receipt Date: 20210712
  Transmission Date: 20211014
  Serious: Yes (Other)
  Sender: FDA-Public Use
  Company Number: US-IGSA-BIG0015144

PATIENT
  Age: 10 Year
  Sex: Male

DRUGS (3)
  1. GAMUNEX?C [Suspect]
     Active Substance: HUMAN IMMUNOGLOBULIN G
     Dosage: 17.5 GRAM, Q.4WK.
     Dates: start: 20210520
  2. GAMUNEX?C [Suspect]
     Active Substance: HUMAN IMMUNOGLOBULIN G
     Indication: SEASONAL AFFECTIVE DISORDER
     Dosage: 17.5 GRAM, Q.4WK.
     Dates: start: 20210520
  3. GAMUNEX?C [Suspect]
     Active Substance: HUMAN IMMUNOGLOBULIN G
     Dosage: 17.5 GRAM, Q.4WK.
     Dates: start: 20210520

REACTIONS (2)
  - Wheezing [Unknown]
  - Urticaria [Unknown]

NARRATIVE: CASE EVENT DATE: 20210520
